FAERS Safety Report 22641634 (Version 4)
Quarter: 2024Q1

REPORT INFORMATION
  Report Type: Spontaneous
  Country: IN (occurrence: IN)
  Receive Date: 20230626
  Receipt Date: 20240208
  Transmission Date: 20240410
  Serious: Yes (Hospitalization, Other)
  Sender: FDA-Public Use
  Company Number: IN-PFIZER INC-2018504443

PATIENT
  Age: 54 Year
  Sex: Female

DRUGS (13)
  1. PALBOCICLIB [Suspect]
     Active Substance: PALBOCICLIB
     Indication: Breast cancer metastatic
     Dosage: 125 MG, (ONCE A DAY, 3 WEEKS ON 1 WEEK OFF)
     Route: 048
     Dates: start: 20181026
  2. PALBOCICLIB [Suspect]
     Active Substance: PALBOCICLIB
     Indication: Breast cancer metastatic
     Dosage: 125 MG, 1X/DAY
     Route: 048
  3. FASLODEX [Suspect]
     Active Substance: FULVESTRANT
     Dosage: 500 MG
     Route: 030
  4. ZOLEDRONIC ACID [Suspect]
     Active Substance: ZOLEDRONIC ACID
     Dosage: 4 MG, OVER 20 MIN
     Route: 042
  5. CALCIROL [COLECALCIFEROL] [Concomitant]
     Dosage: UNK
  6. ACETAMINOPHEN [Concomitant]
     Active Substance: ACETAMINOPHEN
     Indication: Pain
     Dosage: 650 MG, SOS IF PAIN
  7. ULTRACET [Concomitant]
     Active Substance: ACETAMINOPHEN\TRAMADOL HYDROCHLORIDE
     Dosage: 1 DF, 3X/DAY FOR 3 DAYS AND THEN SOS
  8. NURODAY [Concomitant]
     Dosage: 1 DF, 1X/DAY TO CONTINUE
  9. BUDESONIDE\FORMOTEROL FUMARATE [Concomitant]
     Active Substance: BUDESONIDE\FORMOTEROL FUMARATE
     Dosage: 1 DF, 2X/DAY FOR 2 WEEKS
  10. DUOLIN [IPRATROPIUM BROMIDE;SALBUTAMOL SULFATE] [Concomitant]
     Dosage: UNK, AS NEEDED
  11. SHELCAL OS [Concomitant]
     Dosage: 500 MG, TWICE DAILY (0-1-1)
  12. UPRISE D3 [Concomitant]
     Dosage: 60K, ONCE/MONTH
  13. BECOSULES [ASCORBIC ACID;VITAMIN B NOS] [Concomitant]
     Dosage: UNK, TWICE DAILY (1-0-1)

REACTIONS (8)
  - Fracture [Unknown]
  - Lower respiratory tract infection [Recovered/Resolved]
  - Pain [Unknown]
  - Back pain [Unknown]
  - Arthralgia [Unknown]
  - Dysgeusia [Unknown]
  - Glossodynia [Unknown]
  - Tooth disorder [Unknown]

NARRATIVE: CASE EVENT DATE: 20180101
